FAERS Safety Report 19085476 (Version 1)
Quarter: 2021Q2

REPORT INFORMATION
  Report Type: Spontaneous
  Country: US (occurrence: US)
  Receive Date: 20210401
  Receipt Date: 20210401
  Transmission Date: 20210717
  Serious: No
  Sender: FDA-Public Use
  Company Number: US-IBSA PHARMA-2020-IBS-00667

PATIENT
  Age: 65 Year
  Weight: 95 kg

DRUGS (1)
  1. FLECTOR [Suspect]
     Active Substance: DICLOFENAC EPOLAMINE
     Indication: BACK PAIN
     Dosage: 1 DOSAGE FORM, BID
     Route: 061
     Dates: start: 202005, end: 202007

REACTIONS (1)
  - Weight increased [Unknown]
